FAERS Safety Report 10301992 (Version 1)
Quarter: 2014Q3

REPORT INFORMATION
  Report Type: Spontaneous
  Country: US (occurrence: None)
  Receive Date: 20140710
  Receipt Date: 20140710
  Transmission Date: 20150326
  Serious: Yes (Hospitalization)
  Sender: FDA-Public Use
  Company Number: None

PATIENT
  Age: 34 Year
  Sex: Female

DRUGS (1)
  1. COPAXONE [Suspect]
     Active Substance: GLATIRAMER ACETATE
     Indication: MULTIPLE SCLEROSIS
     Dosage: 40MG, TIW, SUB-Q
     Route: 058
     Dates: start: 20140515

REACTIONS (5)
  - Swelling face [None]
  - Body temperature increased [None]
  - Asthenia [None]
  - Hypotension [None]
  - Urticaria [None]

NARRATIVE: CASE EVENT DATE: 20140707
